FAERS Safety Report 18168744 (Version 1)
Quarter: 2020Q3

REPORT INFORMATION
  Report Type: Spontaneous
  Country: US (occurrence: US)
  Receive Date: 20200818
  Receipt Date: 20200818
  Transmission Date: 20201103
  Serious: Yes (Hospitalization)
  Sender: FDA-Public Use
  Company Number: None

PATIENT
  Age: 71 Year
  Sex: Male

DRUGS (9)
  1. BACLOFEN. [Concomitant]
     Active Substance: BACLOFEN
  2. ENVARSUS XR [Suspect]
     Active Substance: TACROLIMUS
     Dosage: EVERY  MORNING
     Route: 048
  3. CEPHALEXIN. [Concomitant]
     Active Substance: CEPHALEXIN
  4. CIPROFLOXACN [Concomitant]
     Active Substance: CIPROFLOXACIN
  5. LISINOPRIL AND HYDROCHLOROTHIAZIDE [Concomitant]
     Active Substance: HYDROCHLOROTHIAZIDE\LISINOPRIL
  6. MYCOPHENOLATE 500MG TAB [Suspect]
     Active Substance: MYCOPHENOLIC ACID
     Route: 048
  7. JANUVIA [Concomitant]
     Active Substance: SITAGLIPTIN PHOSPHATE
  8. HUMULLIN [Concomitant]
  9. ACYCLOVIR. [Concomitant]
     Active Substance: ACYCLOVIR

REACTIONS (1)
  - Suspected COVID-19 [None]

NARRATIVE: CASE EVENT DATE: 202008
